FAERS Safety Report 6101831-2 (Version None)
Quarter: 2009Q1

REPORT INFORMATION
  Report Type: 
  Country: None (occurrence: None)
  Receive Date: 20090303
  Receipt Date: 20090303
  Transmission Date: 20090719
  Serious: Yes (Life-Threatening, Hospitalization, Disabling, Other)
  Sender: FDA-Public Use
  Company Number: None

PATIENT
  Age: 56 Year
  Sex: Female
  Weight: 55.7924 kg

DRUGS (1)
  1. TOPAMAX [Suspect]
     Indication: MIGRAINE PROPHYLAXIS
     Dosage: 100 MG BID BUCCAL
     Route: 002
     Dates: start: 20070901, end: 20090225

REACTIONS (9)
  - BLOOD POTASSIUM DECREASED [None]
  - BONE DISORDER [None]
  - CARDIAC DISORDER [None]
  - CHEST PAIN [None]
  - DIZZINESS [None]
  - FALL [None]
  - FRACTURE [None]
  - HYPERTENSION [None]
  - WEIGHT DECREASED [None]
